FAERS Safety Report 6086276-6 (Version None)
Quarter: 2009Q1

REPORT INFORMATION
  Report Type: 
  Country: None (occurrence: None)
  Receive Date: 20090220
  Receipt Date: 20090213
  Transmission Date: 20090719
  Serious: Yes (Hospitalization)
  Sender: FDA-Public Use
  Company Number: KR-B.I. PHARMACEUTICALS,INC./RIDGEFIELD-2009-BP-01901BP

PATIENT
  Sex: Male
  Weight: 66 kg

DRUGS (4)
  1. BIBF 1120 (BLIND) [Suspect]
     Indication: IDIOPATHIC PULMONARY FIBROSIS
     Route: 048
     Dates: start: 20080403, end: 20090216
  2. PLACEBO (BLIND) [Suspect]
     Indication: IDIOPATHIC PULMONARY FIBROSIS
     Route: 048
     Dates: start: 20080403, end: 20090216
  3. FEXOFENADINE [Concomitant]
     Indication: SINUSITIS
     Dosage: 120MG
     Route: 048
     Dates: start: 20080624, end: 20090214
  4. ERDOSTEINE [Concomitant]
     Indication: PRODUCTIVE COUGH
     Dosage: 300MG
     Route: 048
     Dates: start: 20080624, end: 20090214

REACTIONS (1)
  - LUNG NEOPLASM MALIGNANT [None]
